FAERS Safety Report 10476311 (Version 2)
Quarter: 2014Q4

REPORT INFORMATION
  Report Type: Spontaneous
  Country: US (occurrence: US)
  Receive Date: 20140925
  Receipt Date: 20141022
  Transmission Date: 20150528
  Serious: No
  Sender: FDA-Public Use
  Company Number: US-009507513-1409USA013023

PATIENT
  Age: 79 Year
  Sex: Female
  Weight: 77.98 kg

DRUGS (1)
  1. OXYTROL FOR WOMEN [Suspect]
     Active Substance: OXYBUTYNIN
     Indication: MICTURITION URGENCY
     Dosage: UNK, Q4D
     Route: 062
     Dates: start: 20140906, end: 20140929

REACTIONS (2)
  - Drug effect decreased [Unknown]
  - Product quality issue [Unknown]

NARRATIVE: CASE EVENT DATE: 201409
